FAERS Safety Report 6784028-2 (Version None)
Quarter: 2010Q2

REPORT INFORMATION
  Report Type: 
  Country: None (occurrence: None)
  Receive Date: 20100622
  Receipt Date: 20100611
  Transmission Date: 20101027
  Serious: Yes (Other)
  Sender: FDA-Public Use
  Company Number: US-JNJFOC-20100505833

PATIENT
  Age: 5 Year
  Sex: Female
  Weight: 21.32 kg

DRUGS (5)
  1. CHILDREN'S TYLENOL SUSPENSION [Suspect]
     Indication: HEADACHE
     Dosage: EVERY 4-6 HOURS
     Route: 048
     Dates: start: 20100428, end: 20100503
  2. CHILDREN'S TYLENOL SUSPENSION [Suspect]
     Indication: INJURY
     Dosage: EVERY 4-6 HOURS
     Route: 048
     Dates: start: 20100428, end: 20100503
  3. CHILDREN'S TYLENOL SUSPENSION [Suspect]
     Indication: FALL
     Dosage: EVERY 4-6 HOURS
     Route: 048
     Dates: start: 20100428, end: 20100503
  4. CHILDREN'S TYLENOL SUSPENSION [Suspect]
  5. CHILDREN'S TYLENOL SUSPENSION [Suspect]
     Indication: DRUG USE FOR UNKNOWN INDICATION

REACTIONS (5)
  - ASTHENIA [None]
  - MALAISE [None]
  - PRODUCT QUALITY ISSUE [None]
  - VOMITING [None]
  - WEIGHT DECREASED [None]
